FAERS Safety Report 17395837 (Version 16)
Quarter: 2022Q2

REPORT INFORMATION
  Report Type: Report from Study
  Country: US (occurrence: US)
  Receive Date: 20200210
  Receipt Date: 20220430
  Transmission Date: 20220721
  Serious: Yes (Other)
  Sender: FDA-Public Use
  Company Number: NVSC2020US032851

PATIENT
  Age: 45 Year
  Sex: Female

DRUGS (8)
  1. GILENYA [Suspect]
     Active Substance: FINGOLIMOD HYDROCHLORIDE
     Indication: Relapsing-remitting multiple sclerosis
     Dosage: 0.5 MG, QD
     Route: 048
  2. GILENYA [Suspect]
     Active Substance: FINGOLIMOD HYDROCHLORIDE
     Dosage: 0.5 MG, QD
     Route: 048
     Dates: start: 20200106
  3. GILENYA [Suspect]
     Active Substance: FINGOLIMOD HYDROCHLORIDE
     Dosage: 0.5 MG, QD
     Route: 048
     Dates: start: 20200106
  4. GILENYA [Suspect]
     Active Substance: FINGOLIMOD HYDROCHLORIDE
     Dosage: 0.5 MG, QD
     Route: 048
     Dates: start: 20200116
  5. GILENYA [Suspect]
     Active Substance: FINGOLIMOD HYDROCHLORIDE
     Dosage: 0.5 MG, QD
     Route: 048
  6. GILENYA [Suspect]
     Active Substance: FINGOLIMOD HYDROCHLORIDE
     Dosage: 0.5 MG, QD
     Route: 048
  7. DULCOLAX NOS [Concomitant]
     Active Substance: BISACODYL OR DOCUSATE SODIUM
     Indication: Constipation
     Dosage: UNK
     Route: 065
  8. LINZESS [Concomitant]
     Active Substance: LINACLOTIDE
     Indication: Constipation
     Dosage: UNK
     Route: 065

REACTIONS (33)
  - Neuropathy peripheral [Recovering/Resolving]
  - JC polyomavirus test positive [Unknown]
  - Blindness transient [Unknown]
  - Pain [Unknown]
  - Rhinorrhoea [Unknown]
  - Nasopharyngitis [Unknown]
  - Vertigo [Unknown]
  - Somnolence [Unknown]
  - Eye disorder [Unknown]
  - Pain in extremity [Unknown]
  - Temperature intolerance [Unknown]
  - Euphoric mood [Unknown]
  - Cognitive disorder [Unknown]
  - Blepharospasm [Unknown]
  - Feeling hot [Unknown]
  - Gait disturbance [Unknown]
  - Muscle spasms [Unknown]
  - Feeling cold [Unknown]
  - Abnormal sensation in eye [Unknown]
  - Tongue movement disturbance [Unknown]
  - Oral disorder [Unknown]
  - Hypoacusis [Unknown]
  - Disturbance in attention [Unknown]
  - Blood potassium abnormal [Unknown]
  - Visual impairment [Recovering/Resolving]
  - Mobility decreased [Recovering/Resolving]
  - Feeling abnormal [Unknown]
  - Heart rate decreased [Unknown]
  - Lymphocyte count decreased [Unknown]
  - White blood cell count decreased [Unknown]
  - Fatigue [Unknown]
  - Asthenia [Unknown]
  - Product dose omission issue [Unknown]

NARRATIVE: CASE EVENT DATE: 20200116
